FAERS Safety Report 24310696 (Version 3)
Quarter: 2024Q4

REPORT INFORMATION
  Report Type: Spontaneous
  Country: CL (occurrence: CL)
  Receive Date: 20240912
  Receipt Date: 20241023
  Transmission Date: 20250115
  Serious: Yes (Disabling, Other)
  Sender: ROCHE
  Company Number: CL-ROCHE-10000072833

PATIENT
  Age: 52 Year
  Sex: Female
  Weight: 46 kg

DRUGS (24)
  1. ACTEMRA [Suspect]
     Active Substance: TOCILIZUMAB
     Indication: Rheumatoid arthritis
     Dosage: DOSE WAS NOT REPORTED
     Route: 058
     Dates: start: 2017
  2. PREGABALIN [Concomitant]
     Active Substance: PREGABALIN
     Indication: Product used for unknown indication
     Dosage: 150 MG IN THE MORNING AT AT NIGHT
     Route: 048
     Dates: start: 2014
  3. BRINTELLIX [Concomitant]
     Active Substance: VORTIOXETINE HYDROBROMIDE
     Indication: Depression
     Dosage: FREQUENCY WAS NOT REPORTED
     Route: 048
     Dates: start: 2020
  4. LAMOTRIGINE [Concomitant]
     Active Substance: LAMOTRIGINE
     Indication: Product used for unknown indication
     Dosage: DOSE AND FREQUENCY WERE NOT REPORTED
     Route: 048
     Dates: start: 202311
  5. TRAMADOL [Concomitant]
     Active Substance: TRAMADOL
     Indication: Pain in extremity
     Dosage: 50 DROPS EVERY 2 DAYS
     Dates: start: 2014
  6. TRAMADOL [Concomitant]
     Active Substance: TRAMADOL
     Indication: Fibromyalgia
  7. ACETAMINOPHEN [Concomitant]
     Active Substance: ACETAMINOPHEN
     Indication: Pain
     Dosage: 1 TABLET EVERY 2 DAYS
     Route: 048
     Dates: start: 2014
  8. ROSUVASTATIN [Concomitant]
     Active Substance: ROSUVASTATIN
     Indication: Product used for unknown indication
     Dosage: 2 TABLETS OF 20MG PER DAY
     Route: 048
     Dates: start: 202312
  9. Nexin [Concomitant]
     Dosage: DOSE AND FREQUENCY WERE NOT REPORTED
     Route: 048
  10. ARMODAFINIL [Concomitant]
     Active Substance: ARMODAFINIL
     Indication: Product used for unknown indication
     Dosage: FREQUENCY WAS NOT REPORTED
     Route: 048
     Dates: start: 202309
  11. Bilidren [Concomitant]
     Indication: Urticaria
     Dosage: FREQUENCY WAS NOT REPORTED
  12. CLOTIAZEPAM [Concomitant]
     Active Substance: CLOTIAZEPAM
     Indication: Product used for unknown indication
     Dosage: 1 TABLET OF 10MG AT NIGHT
     Route: 048
     Dates: start: 2021
  13. SOMNO [Concomitant]
     Dosage: ZOLPIDEM 10 MG, AT NIGHT TO SLEEP
     Route: 048
     Dates: start: 202406
  14. MELATONIN [Concomitant]
     Active Substance: MELATONIN
     Dosage: 2 CAPSULES AT NIGHT
     Route: 048
     Dates: start: 2022
  15. SICCAFLUID [Concomitant]
     Indication: Product used for unknown indication
     Dosage: DOSE WAS NOT REPORTED
     Route: 047
     Dates: start: 2017
  16. FLUOROMETOLONA [Concomitant]
     Indication: Product used for unknown indication
     Dosage: FREQUENCY WAS NOT REPORTED
     Dates: start: 202407
  17. SYSTANE ULTRA SP [Concomitant]
     Indication: Product used for unknown indication
     Dosage: ONLY WHEN THERE IS NO STOCK OF SICCAFLUID. DOSE AND FREQUENCY WERE NOT REPORTED
     Dates: start: 2017
  18. THEALOZ DUO GEL [Concomitant]
     Indication: Product used for unknown indication
     Dosage: DOSE AND FREQUENCY WERE NOT REPORTED. ONLY WHEN THERE IS NO STOCK OF SICCAFLUID
     Dates: start: 2017
  19. DISALOT [Concomitant]
     Dosage: DOSE AND FREQUENCY WERE NOT REPORTED. AS AN ALTERNATIVE TO BILDREN.
  20. Ciruelax [Concomitant]
     Dosage: DOSE WAS NOT REPORTED. AT NIGHT
  21. OMEGA 3 [Concomitant]
     Active Substance: CAPSAICIN
     Indication: Product used for unknown indication
     Dosage: 2 CAPSULES PER DAY
     Route: 048
     Dates: start: 2022
  22. ASCORBIC ACID [Concomitant]
     Active Substance: ASCORBIC ACID
     Indication: Product used for unknown indication
     Dosage: DOSE AND FREQUENCY WERE NOT REPORTED
     Dates: start: 2023
  23. Vitamina D [Concomitant]
     Indication: Product used for unknown indication
     Dates: start: 2023
  24. AEROSIL [Concomitant]
     Indication: Irritable bowel syndrome
     Dosage: DOSE AND FREQUENCY WERE NOT REPORTED
     Dates: start: 2022

REACTIONS (19)
  - Drug ineffective [Unknown]
  - Keratitis [Not Recovered/Not Resolved]
  - Dry mouth [Not Recovered/Not Resolved]
  - Photophobia [Unknown]
  - Breast prosthesis removal [Not Recovered/Not Resolved]
  - Fatigue [Not Recovered/Not Resolved]
  - White blood cell count decreased [Not Recovered/Not Resolved]
  - Blood cholesterol increased [Not Recovered/Not Resolved]
  - Lacrimation decreased [Not Recovered/Not Resolved]
  - Sjogren^s syndrome [Not Recovered/Not Resolved]
  - Depression [Unknown]
  - Syncope [Not Recovered/Not Resolved]
  - Dry eye [Not Recovered/Not Resolved]
  - Sensory disturbance [Not Recovered/Not Resolved]
  - Hand deformity [Not Recovered/Not Resolved]
  - Keratitis [Not Recovered/Not Resolved]
  - Blindness [Recovered/Resolved]
  - Arthritis [Not Recovered/Not Resolved]
  - Dry eye [Unknown]

NARRATIVE: CASE EVENT DATE: 20170101
